FAERS Safety Report 6240512-1 (Version None)
Quarter: 2009Q2

REPORT INFORMATION
  Report Type: 
  Country: None (occurrence: None)
  Receive Date: 20090623
  Receipt Date: 20090408
  Transmission Date: 20091009
  Serious: No
  Sender: FDA-Public Use
  Company Number: US-ASTRAZENECA-2009UW08829

PATIENT
  Sex: Male

DRUGS (2)
  1. PULMICORT RESPULES [Suspect]
     Dosage: 0.5 MG/ML
     Route: 055
     Dates: start: 20090406
  2. TYLENOL (CAPLET) [Concomitant]

REACTIONS (2)
  - NIGHTMARE [None]
  - SLEEP DISORDER [None]
